FAERS Safety Report 9164733 (Version 2)
Quarter: 2013Q1

REPORT INFORMATION
  Report Type: Spontaneous
  Country: US (occurrence: US)
  Receive Date: 20130315
  Receipt Date: 20130329
  Transmission Date: 20140127
  Serious: No
  Sender: FDA-Public Use
  Company Number: US-PFIZER INC-2013083729

PATIENT
  Age: 66 Year
  Sex: Female
  Weight: 74.83 kg

DRUGS (3)
  1. LATANOPROST [Suspect]
     Indication: INTRAOCULAR PRESSURE INCREASED
     Dosage: ONE DROP IN EACH EYE
     Route: 047
     Dates: start: 201210, end: 201301
  2. LATANOPROST [Suspect]
     Dosage: UNK
     Route: 047
     Dates: end: 201301
  3. SPIRIVA [Concomitant]
     Indication: DYSPNOEA
     Dosage: UNK

REACTIONS (1)
  - Drug ineffective [Unknown]
